FAERS Safety Report 4280400-3 (Version None)
Quarter: 2004Q1

REPORT INFORMATION
  Report Type: 
  Country: None (occurrence: None)
  Receive Date: 20040126
  Receipt Date: 20040112
  Transmission Date: 20041129
  Serious: Yes (Hospitalization)
  Sender: FDA-Public Use
  Company Number: 2003177653US

PATIENT
  Age: 30 Year
  Sex: Female
  Weight: 68 kg

DRUGS (8)
  1. ZYVOX [Suspect]
     Indication: SEPSIS
     Dosage: 600 MG, SINGLE, IV
     Route: 042
     Dates: start: 20030916, end: 20030916
  2. ZYVOX [Suspect]
     Indication: SEPSIS
     Dosage: 600 MG, BID, ORAL
     Route: 048
     Dates: start: 20030917, end: 20030921
  3. CARDIZEM [Concomitant]
  4. IMURAN [Concomitant]
  5. K-DUR 10 [Concomitant]
  6. XANAX [Concomitant]
  7. UNIRECTIC [Concomitant]
  8. COMPAXONE [Concomitant]

REACTIONS (4)
  - CHEST PAIN [None]
  - DIZZINESS [None]
  - VENTRICULAR EXTRASYSTOLES [None]
  - VENTRICULAR TACHYCARDIA [None]
